FAERS Safety Report 5624864-9 (Version None)
Quarter: 2008Q1

REPORT INFORMATION
  Report Type: 
  Country: None (occurrence: None)
  Receive Date: 20080208
  Receipt Date: 20080131
  Transmission Date: 20080703
  Serious: Yes (Hospitalization)
  Sender: FDA-Public Use
  Company Number: 2008-00576

PATIENT
  Age: 61 Year
  Sex: Female

DRUGS (4)
  1. COLCHICUM JTL LIQ [Suspect]
     Indication: BURSITIS
     Dosage: 0.6 MG, BID, ORAL
     Route: 048
  2. SIMVASTATIN [Suspect]
     Indication: HYPERCHOLESTEROLAEMIA
     Dosage: 40 MG, DAILY,; 80 MG, DAILY, ORAL
  3. ASPIRIN [Concomitant]
  4. HYDROCHLOROTHIAZIDE [Concomitant]

REACTIONS (2)
  - POTENTIATING DRUG INTERACTION [None]
  - RHABDOMYOLYSIS [None]
